FAERS Safety Report 5060048-3 (Version None)
Quarter: 2006Q3

REPORT INFORMATION
  Report Type: 
  Country: None (occurrence: None)
  Receive Date: 20060724
  Receipt Date: 20060621
  Transmission Date: 20061208
  Serious: Yes (Hospitalization)
  Sender: FDA-Public Use
  Company Number: 2006UW13203

PATIENT
  Age: 19881 Day
  Sex: Female
  Weight: 56.6 kg

DRUGS (6)
  1. CRESTOR [Suspect]
     Indication: HYPERLIPIDAEMIA
     Route: 048
  2. CRESTOR [Suspect]
     Route: 048
     Dates: start: 20050823, end: 20060425
  3. ASPIRIN [Concomitant]
  4. ANXIETY MEDICATION [Concomitant]
  5. PRILOSEC OTC [Concomitant]
  6. LIPITOR [Concomitant]
     Dosage: PREVIOUSLY ON LIPITOR BEFORE STARTING CRESTOR
     Route: 048

REACTIONS (4)
  - ANXIETY [None]
  - MYALGIA [None]
  - RHABDOMYOLYSIS [None]
  - TREMOR [None]
